FAERS Safety Report 17317009 (Version 1)
Quarter: 2020Q1

REPORT INFORMATION
  Report Type: Spontaneous
  Country: US (occurrence: US)
  Receive Date: 20200124
  Receipt Date: 20200124
  Transmission Date: 20200409
  Serious: Yes (Other)
  Sender: FDA-Public Use
  Company Number: US-JNJFOC-20200129274

PATIENT
  Age: 57 Year
  Sex: Male

DRUGS (13)
  1. CHOLESTYRAMINE. [Concomitant]
     Active Substance: CHOLESTYRAMINE
  2. TESTOSTERONE. [Concomitant]
     Active Substance: TESTOSTERONE
     Indication: PRODUCT USED FOR UNKNOWN INDICATION
     Route: 030
  3. PROPANOLOL                         /00030001/ [Concomitant]
     Active Substance: PROPRANOLOL HYDROCHLORIDE
  4. VITAMIN B12 [Concomitant]
     Active Substance: CYANOCOBALAMIN
  5. INVEGA SUSTENNA [Suspect]
     Active Substance: PALIPERIDONE PALMITATE
     Indication: PRODUCT USED FOR UNKNOWN INDICATION
     Dosage: 117 MG ADMINISTERED ON 07-JAN-2020
     Route: 030
  6. DEPAKOTE [Concomitant]
     Active Substance: DIVALPROEX SODIUM
  7. VITAMIN B2                         /00154901/ [Concomitant]
     Active Substance: RIBOFLAVIN
  8. NEURONTIN [Concomitant]
     Active Substance: GABAPENTIN
  9. CARVEDILOL. [Concomitant]
     Active Substance: CARVEDILOL
  10. PROBIOTICS NOS [Concomitant]
     Active Substance: PROBIOTICS NOS
  11. PRIMIDONE. [Concomitant]
     Active Substance: PRIMIDONE
  12. BENADRYL [Concomitant]
     Active Substance: DIPHENHYDRAMINE HYDROCHLORIDE
     Indication: PRODUCT USED FOR UNKNOWN INDICATION
  13. SEROQUEL [Concomitant]
     Active Substance: QUETIAPINE FUMARATE

REACTIONS (1)
  - Parkinson^s disease [Unknown]
